FAERS Safety Report 8487655 (Version 4)
Quarter: 2012Q4

REPORT INFORMATION
  Report Type: Report from Study
  Country: JP (occurrence: JP)
  Receive Date: 20120402
  Receipt Date: 20121221
  Transmission Date: 20130627
  Serious: Yes (Hospitalization, Other)
  Sender: FDA-Public Use
  Company Number: JP-VERTEX PHARMACEUTICALS INC.-AE-2012-004430

PATIENT
  Age: 62 Year
  Sex: Female

DRUGS (9)
  1. VX-950 (TELAPREVIR) [Suspect]
     Indication: CHRONIC HEPATITIS C
     Dosage: 1500 mg, qd
     Route: 048
     Dates: start: 20120203, end: 20120227
  2. PEGINTERFERON ALFA-2B [Suspect]
     Indication: CHRONIC HEPATITIS C
     Dosage: 1.5 ?g/kg, qw
     Route: 058
     Dates: start: 20120203, end: 20120227
  3. PEGINTERFERON ALFA-2B [Suspect]
     Dosage: 1.5 ?g/kg, qw
     Route: 058
     Dates: start: 20120302, end: 20120408
  4. PEGINTERFERON ALFA-2B [Suspect]
     Dosage: 1.1 ?g/kg, qw
     Route: 058
     Dates: start: 20120409
  5. RIBAVIRIN [Suspect]
     Indication: CHRONIC HEPATITIS C
     Dosage: 200 mg, qod
     Route: 048
     Dates: start: 20120203, end: 20120227
  6. RIBAVIRIN [Suspect]
     Dosage: 200 mg, qod
     Route: 048
     Dates: start: 20120618
  7. ZETIA [Concomitant]
     Dosage: 10 mg, qd
     Route: 048
  8. ZETIA [Concomitant]
     Route: 048
  9. THYRADIN S [Concomitant]
     Dosage: 25 ?g, qd
     Route: 048

REACTIONS (4)
  - Renal impairment [Recovered/Resolved]
  - Face oedema [Recovered/Resolved]
  - Anaemia [Not Recovered/Not Resolved]
  - Thrombocytopenia [Not Recovered/Not Resolved]
